FAERS Safety Report 5487430-4 (Version None)
Quarter: 2007Q4

REPORT INFORMATION
  Report Type: 
  Country: None (occurrence: None)
  Receive Date: 20071015
  Receipt Date: 20071010
  Transmission Date: 20080405
  Serious: Yes (Life-Threatening, Hospitalization)
  Sender: FDA-Public Use
  Company Number: 167-C5013-07090210

PATIENT
  Age: 59 Year
  Sex: Male
  Weight: 93.7 kg

DRUGS (5)
  1. CC-5013 (LENALIDOMIDE) (CAPSULES) [Suspect]
     Indication: MULTIPLE MYELOMA
     Dosage: 25 MG, ONCE DAILY, ORAL, 15 MG, ONCE DAILY, ORAL
     Route: 048
     Dates: start: 20070707, end: 20070906
  2. CC-5013 (LENALIDOMIDE) (CAPSULES) [Suspect]
     Indication: MULTIPLE MYELOMA
     Dosage: 25 MG, ONCE DAILY, ORAL, 15 MG, ONCE DAILY, ORAL
     Route: 048
     Dates: start: 20070907, end: 20070910
  3. DEXAMETHASONE TAB [Suspect]
     Indication: MULTIPLE MYELOMA
     Dosage: 40 MG, ONCE DAILY ON DAYS 1-4, 9-12, 17-20, ORAL
     Route: 048
     Dates: start: 20070707, end: 20070910
  4. PHYTONADIONE [Concomitant]
  5. G-CSF (GRANULOCYTE COLONY STIMULATING FACTOR) [Concomitant]

REACTIONS (6)
  - ANAEMIA [None]
  - DEHYDRATION [None]
  - INTERNATIONAL NORMALISED RATIO INCREASED [None]
  - LOWER RESPIRATORY TRACT INFECTION FUNGAL [None]
  - NEUTROPENIA [None]
  - PLATELET COUNT DECREASED [None]
